FAERS Safety Report 6236724-3 (Version None)
Quarter: 2009Q2

REPORT INFORMATION
  Report Type: 
  Country: None (occurrence: None)
  Receive Date: 20090619
  Receipt Date: 20090610
  Transmission Date: 20091009
  Serious: Yes (Hospitalization)
  Sender: FDA-Public Use
  Company Number: CH-ALEXION-A200900474

PATIENT
  Sex: Male

DRUGS (15)
  1. SOLIRIS [Suspect]
     Dosage: 600 MG, UNK
     Route: 042
     Dates: start: 20080815, end: 20081205
  2. SOLIRIS [Suspect]
     Dosage: 600 MG, QW
     Route: 042
     Dates: start: 20090501
  3. SOLIRIS [Suspect]
     Dosage: 900 MG, QW
     Route: 042
     Dates: start: 20090605
  4. SANDIMMUNE [Concomitant]
     Dosage: 200 MG, QD
     Dates: start: 19970101
  5. BELOC ZOK [Concomitant]
     Dosage: 25 MG, QD
  6. NORVASC [Concomitant]
     Dosage: 10 MG, QD
  7. VALTREX [Concomitant]
     Dosage: 500 MG, QD
  8. SORTIS                             /01326101/ [Concomitant]
     Dosage: 10 MG, QD
  9. PRADIF [Concomitant]
     Dosage: 400 UG, QD
  10. OEDEMEX [Concomitant]
     Dosage: UNK
  11. METOLAZONE [Concomitant]
     Dosage: 5 MG, QD
  12. LISINOPRIL [Concomitant]
     Dosage: 5 MG, QD
  13. MARCUMAR [Concomitant]
     Dosage: UNK
     Dates: start: 20060301
  14. LANTUS [Concomitant]
     Dosage: 80 IU, QD
     Route: 058
  15. HUMALOG [Concomitant]
     Dosage: ADAPTED TO GLYCEMIA

REACTIONS (6)
  - ARTHRALGIA [None]
  - C-REACTIVE PROTEIN INCREASED [None]
  - CHILLS [None]
  - DYSAESTHESIA [None]
  - MYALGIA [None]
  - PYREXIA [None]
